FAERS Safety Report 7536308-0 (Version None)
Quarter: 2011Q2

REPORT INFORMATION
  Report Type: 
  Country: None (occurrence: None)
  Receive Date: 20110609
  Receipt Date: 20110602
  Transmission Date: 20111010
  Serious: Yes (Other)
  Sender: FDA-Public Use
  Company Number: CA-AMGEN-CANCT2011014399

PATIENT
  Age: 80 Year

DRUGS (2)
  1. ELIGARD [Concomitant]
     Dosage: 45 MG, Q6MO
     Route: 058
     Dates: start: 20091008
  2. DENOSUMAB [Suspect]
     Indication: PROSTATE CANCER
     Dates: start: 20080205, end: 20101207

REACTIONS (1)
  - OSTEOMYELITIS [None]
